FAERS Safety Report 25224950 (Version 1)
Quarter: 2025Q2

REPORT INFORMATION
  Report Type: Spontaneous
  Country: US (occurrence: None)
  Receive Date: 20250422
  Receipt Date: 20250422
  Transmission Date: 20250716
  Serious: Yes (Disabling)
  Sender: FDA-CTU
  Company Number: None

PATIENT
  Age: 15 Year
  Weight: 65.25 kg

DRUGS (4)
  1. LEXAPRO [Suspect]
     Active Substance: ESCITALOPRAM OXALATE
     Indication: Depression
     Dosage: FREQUENCY : DAILY;?
     Route: 048
     Dates: start: 20211015, end: 20220815
  2. Lactobillicus Probiotic [Concomitant]
  3. VITAMIN D [Concomitant]
     Active Substance: VITAMIN D NOS
  4. ibuprofen (ADVIL) over-the-counter PRN [Concomitant]

REACTIONS (11)
  - Sexual dysfunction [None]
  - Anhedonia [None]
  - Therapy cessation [None]
  - Electric shock sensation [None]
  - Headache [None]
  - Disorientation [None]
  - Genital anaesthesia [None]
  - Hypoaesthesia [None]
  - Micturition urgency [None]
  - Penile pain [None]
  - Deafness [None]

NARRATIVE: CASE EVENT DATE: 20211015
